FAERS Safety Report 4840327-2 (Version None)
Quarter: 2005Q4

REPORT INFORMATION
  Report Type: 
  Country: None (occurrence: None)
  Receive Date: 20051031
  Receipt Date: 20050717
  Transmission Date: 20060501
  Serious: No
  Sender: FDA-Public Use
  Company Number: 200515812US

PATIENT
  Age: 27 Year
  Sex: Female
  Weight: 59 kg

DRUGS (2)
  1. KETEK [Suspect]
     Indication: SINUSITIS
     Dates: start: 20041101, end: 20041101
  2. NEXIUM [Concomitant]

REACTIONS (2)
  - APPLICATION SITE DISCOLOURATION [None]
  - SKIN HYPERPIGMENTATION [None]
